FAERS Safety Report 11324615 (Version 7)
Quarter: 2015Q4

REPORT INFORMATION
  Report Type: Spontaneous
  Country: IT (occurrence: IT)
  Receive Date: 20150730
  Receipt Date: 20151211
  Transmission Date: 20160304
  Serious: Yes (Death, Life-Threatening, Hospitalization, Other)
  Sender: FDA-Public Use
  Company Number: IT-EXELIXIS-CABO-15005584

PATIENT
  Age: 61 Year
  Sex: Male
  Weight: 65.5 kg

DRUGS (12)
  1. LOPERAMIDE [Concomitant]
     Active Substance: LOPERAMIDE
     Indication: DIARRHOEA
  2. PANTOPRAZOLO [Concomitant]
     Active Substance: PANTOPRAZOLE SODIUM
     Indication: GASTROINTESTINAL DISORDER
  3. LYRICA [Concomitant]
     Active Substance: PREGABALIN
     Indication: PAIN MANAGEMENT
  4. EFFENTORA [Concomitant]
     Active Substance: FENTANYL CITRATE
     Indication: PAIN MANAGEMENT
  5. DAPAROX [Concomitant]
     Active Substance: PAROXETINE HYDROCHLORIDE
     Indication: PAIN MANAGEMENT
  6. COMETRIQ [Suspect]
     Active Substance: CABOZANTINIB S-MALATE
     Dosage: 100 MG, QD
     Route: 048
     Dates: start: 201412, end: 20150627
  7. CYMBALTA [Concomitant]
     Active Substance: DULOXETINE HYDROCHLORIDE
     Indication: PAIN MANAGEMENT
  8. SOLDESAM [Concomitant]
     Active Substance: DEXAMETHASONE
     Indication: ANTIINFLAMMATORY THERAPY
  9. COMETRIQ [Suspect]
     Active Substance: CABOZANTINIB S-MALATE
     Indication: MEDULLARY THYROID CANCER
     Dosage: 140 MG, QD
     Route: 048
  10. XANAX [Concomitant]
     Active Substance: ALPRAZOLAM
     Indication: DEPRESSION
  11. LENVATINIB [Suspect]
     Active Substance: LENVATINIB
     Indication: MEDULLARY THYROID CANCER
     Dosage: 24 MG, QD
     Route: 048
     Dates: start: 20150629
  12. EUTIROX (LT4) [Concomitant]
     Indication: HYPOTHYROIDISM

REACTIONS (8)
  - Abdominal pain [Not Recovered/Not Resolved]
  - Pain in extremity [Unknown]
  - Metastases to lymph nodes [Unknown]
  - Oedema peripheral [Unknown]
  - Haemorrhage [Fatal]
  - Death [Fatal]
  - Malignant neoplasm progression [Unknown]
  - Skin ulcer [Unknown]

NARRATIVE: CASE EVENT DATE: 20150718
